FAERS Safety Report 20990100 (Version 2)
Quarter: 2025Q3

REPORT INFORMATION
  Report Type: Spontaneous
  Country: US (occurrence: US)
  Receive Date: 20220621
  Receipt Date: 20250702
  Transmission Date: 20251021
  Serious: Yes (Life-Threatening, Other)
  Sender: PURDUE
  Company Number: US-PURDUE PHARMA-USA-2022-0291883

PATIENT

DRUGS (5)
  1. OXYCONTIN [Suspect]
     Active Substance: OXYCODONE HYDROCHLORIDE
     Indication: Road traffic accident
     Route: 048
  2. OXYCONTIN [Suspect]
     Active Substance: OXYCODONE HYDROCHLORIDE
     Indication: Upper limb fracture
  3. OXYCONTIN [Suspect]
     Active Substance: OXYCODONE HYDROCHLORIDE
     Indication: Upper limb fracture
  4. OXYCODONE HYDROCHLORIDE [Suspect]
     Active Substance: OXYCODONE HYDROCHLORIDE
     Indication: Product used for unknown indication
     Dosage: 6 TABLET, DAILY
     Route: 065
  5. HEROIN [Suspect]
     Active Substance: DIAMORPHINE
     Indication: Product used for unknown indication
     Route: 065

REACTIONS (9)
  - Near death experience [Unknown]
  - Overdose [Unknown]
  - Drug dependence [Unknown]
  - Back injury [Unknown]
  - Pain [Unknown]
  - Fall [Unknown]
  - Injury [Unknown]
  - Mental disorder [Unknown]
  - Cognitive disorder [Unknown]
